FAERS Safety Report 11644149 (Version 1)
Quarter: 2015Q4

REPORT INFORMATION
  Report Type: Spontaneous
  Country: US (occurrence: US)
  Receive Date: 20151020
  Receipt Date: 20151020
  Transmission Date: 20160304
  Serious: No
  Sender: FDA-Public Use
  Company Number: US-PFIZER INC-2015339828

PATIENT
  Age: 63 Year
  Sex: Female

DRUGS (16)
  1. LOVASTATIN. [Concomitant]
     Active Substance: LOVASTATIN
  2. OMEPRAZOLE. [Concomitant]
     Active Substance: OMEPRAZOLE
  3. HYDROCODONE/ACETAMINOPHEN [Concomitant]
     Active Substance: ACETAMINOPHEN\HYDROCODONE
  4. URSODIOL. [Concomitant]
     Active Substance: URSODIOL
  5. FENTANYL. [Concomitant]
     Active Substance: FENTANYL
  6. RENVELA [Concomitant]
     Active Substance: SEVELAMER CARBONATE
  7. ATENOLOL. [Concomitant]
     Active Substance: ATENOLOL
  8. CITALOPRAM HYDROBROMIDE. [Concomitant]
     Active Substance: CITALOPRAM HYDROBROMIDE
  9. LETROZOLE. [Concomitant]
     Active Substance: LETROZOLE
     Dosage: 2.5 MG, UNK
  10. ONDANSETRON [Concomitant]
     Active Substance: ONDANSETRON
  11. AMLODIPINE BESYLATE. [Concomitant]
     Active Substance: AMLODIPINE BESYLATE
  12. CALCIUM D [Concomitant]
     Active Substance: CALCIUM\VITAMIN D
  13. LORATADINE. [Concomitant]
     Active Substance: LORATADINE
  14. ORPHENADRINE CITRATE. [Concomitant]
     Active Substance: ORPHENADRINE CITRATE
  15. IBRANCE [Suspect]
     Active Substance: PALBOCICLIB
     Indication: NEOPLASM MALIGNANT
     Dosage: UNK
     Dates: start: 20150601
  16. WARFARIN SODIUM. [Concomitant]
     Active Substance: WARFARIN SODIUM

REACTIONS (2)
  - Neoplasm malignant [Unknown]
  - Disease progression [Unknown]
